FAERS Safety Report 6804880-1 (Version None)
Quarter: 2010Q2

REPORT INFORMATION
  Report Type: 
  Country: None (occurrence: None)
  Receive Date: 20100628
  Receipt Date: 20070615
  Transmission Date: 20101027
  Serious: No
  Sender: FDA-Public Use
  Company Number: US-PFIZER INC-2007049630

PATIENT
  Sex: Male

DRUGS (1)
  1. ELETRIPTAN HYDROBROMIDE [Suspect]
     Indication: HEADACHE

REACTIONS (3)
  - FEELING ABNORMAL [None]
  - FEELING HOT [None]
  - THROAT TIGHTNESS [None]
